FAERS Safety Report 6049524-4 (Version None)
Quarter: 2009Q1

REPORT INFORMATION
  Report Type: 
  Country: None (occurrence: None)
  Receive Date: 20090121
  Receipt Date: 20090108
  Transmission Date: 20090719
  Serious: Yes (Hospitalization)
  Sender: FDA-Public Use
  Company Number: 09P-082-0496378-00

PATIENT
  Age: 13 Month
  Sex: Male

DRUGS (4)
  1. SYNAGIS [Suspect]
     Indication: ANTIVIRAL PROPHYLAXIS
     Dosage: ST DOSE (1ST DOSE), 2ND DOSE (2ND DOSE), 3RD DOSE (3RD DOSE), 4TH DOSE (4TH DOSE)
     Dates: start: 20080925, end: 20080925
  2. SYNAGIS [Suspect]
     Indication: ANTIVIRAL PROPHYLAXIS
     Dosage: ST DOSE (1ST DOSE), 2ND DOSE (2ND DOSE), 3RD DOSE (3RD DOSE), 4TH DOSE (4TH DOSE)
     Dates: start: 20081023, end: 20081023
  3. SYNAGIS [Suspect]
     Indication: ANTIVIRAL PROPHYLAXIS
     Dosage: ST DOSE (1ST DOSE), 2ND DOSE (2ND DOSE), 3RD DOSE (3RD DOSE), 4TH DOSE (4TH DOSE)
     Dates: start: 20081028, end: 20081028
  4. SYNAGIS [Suspect]
     Indication: ANTIVIRAL PROPHYLAXIS
     Dosage: ST DOSE (1ST DOSE), 2ND DOSE (2ND DOSE), 3RD DOSE (3RD DOSE), 4TH DOSE (4TH DOSE)
     Dates: start: 20081216, end: 20081216

REACTIONS (1)
  - BRONCHIOLITIS [None]
